FAERS Safety Report 11417368 (Version 1)
Quarter: 2015Q3

REPORT INFORMATION
  Report Type: Spontaneous
  Country: US (occurrence: US)
  Receive Date: 20150825
  Receipt Date: 20150825
  Transmission Date: 20151125
  Serious: Yes (Death, Other)
  Sender: FDA-Public Use
  Company Number: US-DSJP-DSU-2015-126482

PATIENT

DRUGS (1)
  1. WELCHOL [Suspect]
     Active Substance: COLESEVELAM HYDROCHLORIDE
     Indication: OFF LABEL USE
     Dosage: 625 MG, UNK

REACTIONS (3)
  - Stent placement [Recovered/Resolved]
  - Off label use [Unknown]
  - Intracranial aneurysm [Fatal]
